FAERS Safety Report 7016636-8 (Version None)
Quarter: 2010Q3

REPORT INFORMATION
  Report Type: 
  Country: None (occurrence: None)
  Receive Date: 20100927
  Receipt Date: 20100917
  Transmission Date: 20110219
  Serious: Yes (Life-Threatening)
  Sender: FDA-Public Use
  Company Number: B0676195A

PATIENT

DRUGS (1)
  1. PAROXETINE HCL [Suspect]
     Indication: INSOMNIA
     Dosage: 20MG TWICE PER DAY
     Route: 048
     Dates: start: 20100301

REACTIONS (1)
  - SHOCK [None]
